FAERS Safety Report 19153130 (Version 1)
Quarter: 2021Q2

REPORT INFORMATION
  Report Type: Spontaneous
  Country: US (occurrence: US)
  Receive Date: 20210419
  Receipt Date: 20210419
  Transmission Date: 20210717
  Serious: Yes (Other)
  Sender: FDA-Public Use
  Company Number: NVSC2020US349352

PATIENT
  Age: 8 Year
  Sex: Male

DRUGS (6)
  1. TEMOZOLOMIDE. [Suspect]
     Active Substance: TEMOZOLOMIDE
     Indication: OPTIC GLIOMA
     Dosage: UNK UNK, CYCLIC
     Route: 065
  2. CARBOPLATIN. [Suspect]
     Active Substance: CARBOPLATIN
     Indication: OPTIC GLIOMA
     Dosage: UNK
     Route: 065
     Dates: start: 201210, end: 201402
  3. AVASTIN [Suspect]
     Active Substance: BEVACIZUMAB
     Indication: OPTIC GLIOMA
     Dosage: UNK
     Route: 065
     Dates: start: 20160217, end: 20180111
  4. VELBAN [Suspect]
     Active Substance: VINBLASTINE SULFATE
     Indication: OPTIC GLIOMA
     Dosage: UNK, (28 WEEKS)
     Route: 065
     Dates: start: 201412
  5. VINCRISTINE [Suspect]
     Active Substance: VINCRISTINE
     Indication: OPTIC GLIOMA
     Dosage: UNK
     Route: 065
     Dates: start: 201210, end: 201402
  6. IRINOTECAN [Suspect]
     Active Substance: IRINOTECAN
     Indication: OPTIC GLIOMA
     Dosage: UNK
     Route: 065
     Dates: start: 20160217, end: 20180111

REACTIONS (4)
  - Optic glioma [Unknown]
  - Seizure [Unknown]
  - Malignant neoplasm progression [Unknown]
  - Anaphylactic reaction [Unknown]

NARRATIVE: CASE EVENT DATE: 2016
